FAERS Safety Report 5571396-2 (Version None)
Quarter: 2007Q4

REPORT INFORMATION
  Report Type: 
  Country: None (occurrence: None)
  Receive Date: 20071221
  Receipt Date: 20071112
  Transmission Date: 20080405
  Serious: No
  Sender: FDA-Public Use
  Company Number: A0686139A

PATIENT
  Age: 56 Year
  Sex: Female

DRUGS (6)
  1. FLONASE [Suspect]
     Dosage: 2SPR PER DAY
     Route: 045
  2. FLUTICASONE PROPIONATE [Suspect]
     Dosage: 2SPR PER DAY
     Route: 045
     Dates: start: 20050101
  3. ANTIHISTAMINES [Concomitant]
  4. ARMOUR [Concomitant]
  5. PROTONIX [Concomitant]
  6. RESTASIS [Concomitant]

REACTIONS (3)
  - DRUG INEFFECTIVE [None]
  - ILL-DEFINED DISORDER [None]
  - PHARMACEUTICAL PRODUCT COMPLAINT [None]
